FAERS Safety Report 24047665 (Version 2)
Quarter: 2024Q3

REPORT INFORMATION
  Report Type: Spontaneous
  Country: DE (occurrence: DE)
  Receive Date: 20240703
  Receipt Date: 20240723
  Transmission Date: 20241017
  Serious: Yes (Life-Threatening, Hospitalization, Other)
  Sender: MERCK
  Company Number: DE-009507513-2406DEU010006

PATIENT
  Age: 55 Year
  Sex: Female
  Weight: 63 kg

DRUGS (1)
  1. PEMBROLIZUMAB [Suspect]
     Active Substance: PEMBROLIZUMAB
     Indication: Triple negative breast cancer
     Dosage: 200MG EVERY THREE WEEKS IV
     Route: 042
     Dates: start: 20240328, end: 20240530

REACTIONS (3)
  - Acute kidney injury [Recovered/Resolved]
  - Immune-mediated nephritis [Recovered/Resolved]
  - Liver function test abnormal [Recovered/Resolved]

NARRATIVE: CASE EVENT DATE: 20240619
